FAERS Safety Report 4728330-4 (Version None)
Quarter: 2005Q3

REPORT INFORMATION
  Report Type: 
  Country: None (occurrence: None)
  Receive Date: 20050727
  Receipt Date: 20050714
  Transmission Date: 20060218
  Serious: Yes (Other)
  Sender: FDA-Public Use
  Company Number: 2005090892

PATIENT
  Age: 56 Year
  Sex: Male
  Weight: 124.7392 kg

DRUGS (8)
  1. ZOLOFT [Suspect]
     Indication: APPETITE DISORDER
     Dosage: 50 MG (50 MG, 1 IN 1 D), ORAL
     Route: 048
     Dates: start: 20041201
  2. CYMBALTA [Suspect]
     Indication: NEUROPATHIC PAIN
     Dosage: 60 MG (60 MG, 1 IN 1 D),ORAL
     Route: 048
     Dates: start: 22050501, end: 20050601
  3. TYLENOL [Concomitant]
  4. DARCOVET (DEXTROPROPOXYPHENE NAPSILATE, PARACETAMOL [Concomitant]
  5. PERCOCET [Concomitant]
  6. ACETYLSALICYLIC ACID SRT [Concomitant]
  7. ATENOLOL [Concomitant]
  8. HYDROCHLOROTHIAZIDE [Concomitant]

REACTIONS (5)
  - BLOOD PRESSURE INCREASED [None]
  - DRUG EFFECT DECREASED [None]
  - DYSPHAGIA [None]
  - FEELING HOT [None]
  - MALAISE [None]
